FAERS Safety Report 7903509-9 (Version None)
Quarter: 2011Q4

REPORT INFORMATION
  Report Type: 
  Country: None (occurrence: None)
  Receive Date: 20111103
  Receipt Date: 20111021
  Transmission Date: 20120403
  Serious: Yes (Other)
  Sender: FDA-Public Use
  Company Number: 2011SP045102

PATIENT
  Sex: Male

DRUGS (4)
  1. TEMODAL [Suspect]
     Dosage: 375 MG;QD;PO 350 MG;QD;PO
     Route: 048
     Dates: start: 20110620, end: 20110625
  2. TEMODAL [Suspect]
     Dosage: 375 MG;QD;PO 350 MG;QD;PO
     Route: 048
     Dates: start: 20110719, end: 20110724
  3. TEMODAL [Suspect]
     Dosage: 375 MG;QD;PO 350 MG;QD;PO
     Route: 048
     Dates: start: 20110519, end: 20110519
  4. TEMODAL [Suspect]
     Dosage: 375 MG;QD;PO 350 MG;QD;PO
     Route: 048
     Dates: start: 20110520, end: 20110523

REACTIONS (6)
  - RETINAL DETACHMENT [None]
  - PARANEOPLASTIC SYNDROME [None]
  - EYE DISORDER [None]
  - SCINTILLATING SCOTOMA [None]
  - VITREOUS DETACHMENT [None]
  - ANTIBODY TEST POSITIVE [None]
